FAERS Safety Report 23799897 (Version 1)
Quarter: 2024Q2

REPORT INFORMATION
  Report Type: Spontaneous
  Country: FR (occurrence: FR)
  Receive Date: 20240430
  Receipt Date: 20240430
  Transmission Date: 20240716
  Serious: Yes (Hospitalization)
  Sender: FDA-Public Use
  Company Number: FR-ANIPHARMA-2024-FR-000070

PATIENT
  Age: 90 Year
  Sex: Female

DRUGS (7)
  1. CANDESARTAN CILEXETIL [Suspect]
     Active Substance: CANDESARTAN CILEXETIL
     Indication: Hypertension
     Dosage: 8 MG DAILY
     Route: 048
     Dates: end: 20100531
  2. OXYBUTYNIN [Suspect]
     Active Substance: OXYBUTYNIN\OXYBUTYNIN CHLORIDE
     Dosage: 15 MG DAILY
     Route: 048
     Dates: end: 20100531
  3. DIETARY SUPPLEMENT [Concomitant]
     Active Substance: DIETARY SUPPLEMENT
  4. FENTANYL [Concomitant]
     Active Substance: FENTANYL\FENTANYL CITRATE
     Dosage: 12 UG Q1H
     Route: 050
     Dates: start: 20100524
  5. INDAPAMIDE [Suspect]
     Active Substance: INDAPAMIDE
     Dosage: 1.5 MG DAILY
     Route: 048
     Dates: end: 20100531
  6. IXPRIM [Suspect]
     Active Substance: ACETAMINOPHEN\TRAMADOL HYDROCHLORIDE
     Dosage: 37.5 + 325 MG
     Dates: start: 20100522, end: 20100524
  7. FENOFIBRATE [Suspect]
     Active Substance: FENOFIBRATE
     Dosage: 300 MG DAILY
     Route: 048
     Dates: end: 20100531

REACTIONS (3)
  - Dyspepsia [Recovered/Resolved]
  - Inappropriate antidiuretic hormone secretion [Recovered/Resolved]
  - Hyponatraemia [Recovered/Resolved]

NARRATIVE: CASE EVENT DATE: 20100522
